FAERS Safety Report 4740179-5 (Version None)
Quarter: 2005Q3

REPORT INFORMATION
  Report Type: 
  Country: None (occurrence: None)
  Receive Date: 20050810
  Receipt Date: 20050210
  Transmission Date: 20060218
  Serious: No
  Sender: FDA-Public Use
  Company Number: US-GLAXOSMITHKLINE-A0545086A

PATIENT
  Sex: Male

DRUGS (2)
  1. PAXIL [Suspect]
  2. PAXIL CR [Suspect]
     Route: 048

REACTIONS (5)
  - DRUG WITHDRAWAL SYNDROME [None]
  - EJACULATION FAILURE [None]
  - ELECTRIC SHOCK [None]
  - SEXUAL DYSFUNCTION [None]
  - VERTIGO [None]
